FAERS Safety Report 6397615-0 (Version None)
Quarter: 2009Q4

REPORT INFORMATION
  Report Type: 
  Country: None (occurrence: None)
  Receive Date: 20091012
  Receipt Date: 20091002
  Transmission Date: 20100525
  Serious: Yes (Hospitalization)
  Sender: FDA-Public Use
  Company Number: CHPA2009US19706

PATIENT
  Age: 78 Year
  Sex: Female
  Weight: 80.726 kg

DRUGS (1)
  1. MAALOX MS TOTAL STOMACH RELIEF (NCH) [Suspect]
     Indication: ABDOMINAL PAIN UPPER
     Dosage: UNK

REACTIONS (1)
  - FAECES DISCOLOURED [None]
